FAERS Safety Report 6071372-X (Version None)
Quarter: 2009Q1

REPORT INFORMATION
  Report Type: 
  Country: None (occurrence: None)
  Receive Date: 20090202
  Receipt Date: 20081216
  Transmission Date: 20090719
  Serious: Yes (Other)
  Sender: FDA-Public Use
  Company Number: 182580USA

PATIENT
  Age: 60 Year
  Sex: Female

DRUGS (1)
  1. ZOLPIDEM TARTRATE [Suspect]
     Dosage: 5 MG (5 MG, 1 IN 1 D), ORAL
     Route: 048
     Dates: start: 20081207, end: 20081213

REACTIONS (6)
  - COGNITIVE DISORDER [None]
  - DYSPHAGIA [None]
  - HALLUCINATIONS, MIXED [None]
  - PSYCHOTIC DISORDER [None]
  - THINKING ABNORMAL [None]
  - TREMOR [None]
